FAERS Safety Report 13495861 (Version 2)
Quarter: 2017Q2

REPORT INFORMATION
  Report Type: Spontaneous
  Country: US (occurrence: US)
  Receive Date: 20170428
  Receipt Date: 20170504
  Transmission Date: 20170830
  Serious: No
  Sender: FDA-Public Use
  Company Number: US-BAYER-2017-075487

PATIENT
  Age: 12 Year
  Sex: Male
  Weight: 127 kg

DRUGS (2)
  1. DUAL-LAX [Concomitant]
  2. MIRALAX [Suspect]
     Active Substance: POLYETHYLENE GLYCOL 3350
     Indication: GASTROINTESTINAL DISORDER
     Dosage: 1 DF, Q1HR; DRUG WAS NOT YET STARTED
     Route: 048

REACTIONS (2)
  - Off label use [None]
  - Product use in unapproved indication [None]
